FAERS Safety Report 9356449 (Version 2)
Quarter: 2013Q3

REPORT INFORMATION
  Report Type: Spontaneous
  Country: AT (occurrence: AT)
  Receive Date: 20130619
  Receipt Date: 20130711
  Transmission Date: 20140515
  Serious: Yes (Other)
  Sender: FDA-Public Use
  Company Number: AT-BRISTOL-MYERS SQUIBB COMPANY-19000371

PATIENT
  Age: 36 Year
  Sex: Male

DRUGS (1)
  1. YERVOY [Suspect]
     Indication: MALIGNANT MELANOMA
     Dosage: 238.2 MG
     Route: 042
     Dates: start: 20120611, end: 20120813

REACTIONS (1)
  - Intestinal mucosal hypertrophy [Unknown]
